FAERS Safety Report 12785139 (Version 4)
Quarter: 2017Q2

REPORT INFORMATION
  Report Type: Spontaneous
  Country: JP (occurrence: JP)
  Receive Date: 20160927
  Receipt Date: 20170607
  Transmission Date: 20170830
  Serious: Yes (Death, Life-Threatening, Hospitalization)
  Sender: FDA-Public Use
  Company Number: JP-BAYER-2016-186131

PATIENT
  Age: 74 Year
  Sex: Male
  Weight: 43.7 kg

DRUGS (9)
  1. NEXAVAR [Suspect]
     Active Substance: SORAFENIB
     Indication: HEPATOCELLULAR CARCINOMA
     Dosage: 600 MG, QD
     Route: 048
     Dates: start: 20160706, end: 20160810
  2. ALLOPURINOL. [Concomitant]
     Active Substance: ALLOPURINOL
     Indication: HYPERURICAEMIA
     Dosage: DAILY DOSE 100 MG
     Route: 048
  3. FUROSEMIDE. [Concomitant]
     Active Substance: FUROSEMIDE
     Indication: HYPERTENSION
     Dosage: DAILY DOSE 20 MG
     Route: 048
  4. NEXAVAR [Suspect]
     Active Substance: SORAFENIB
     Indication: HEPATOCELLULAR CARCINOMA
     Dosage: UNK
     Dates: start: 201610
  5. AMLODIPINE [Concomitant]
     Active Substance: AMLODIPINE BESYLATE
     Indication: HYPERTENSION
     Dosage: DAILY DOSE 10 MG
     Route: 048
  6. NEXAVAR [Suspect]
     Active Substance: SORAFENIB
     Indication: HEPATOCELLULAR CARCINOMA
     Dosage: 400 MG, QD
     Route: 048
     Dates: start: 20160616, end: 20160705
  7. NEXAVAR [Suspect]
     Active Substance: SORAFENIB
     Indication: HEPATOCELLULAR CARCINOMA
     Dosage: 400 MG, QD
     Route: 048
     Dates: start: 20160927
  8. AZILSARTAN [Concomitant]
     Active Substance: AZILSARTAN KAMEDOXOMIL
     Indication: HYPERTENSION
     Dosage: DAILY DOSE 20 MG
     Route: 048
  9. CARBO ACTIVATUS [Concomitant]
     Indication: CHRONIC KIDNEY DISEASE
     Dosage: 6 G, QD
     Route: 048

REACTIONS (11)
  - Pulmonary mass [Fatal]
  - Blood creatine phosphokinase increased [None]
  - Asthenia [Fatal]
  - Erythema multiforme [None]
  - Eating disorder [Fatal]
  - Rash [Recovering/Resolving]
  - Muscular weakness [Fatal]
  - Pulmonary cavitation [Fatal]
  - Respiratory disorder [Fatal]
  - Paraneoplastic dermatomyositis [Fatal]
  - Drug eruption [Recovering/Resolving]

NARRATIVE: CASE EVENT DATE: 201607
